FAERS Safety Report 8107481-0 (Version None)
Quarter: 2012Q1

REPORT INFORMATION
  Report Type: 
  Country: None (occurrence: None)
  Receive Date: 20120202
  Receipt Date: 20120126
  Transmission Date: 20120608
  Serious: Yes (Other)
  Sender: FDA-Public Use
  Company Number: JP-BAXTER-2011BH040160

PATIENT
  Age: 39 Year
  Sex: Male

DRUGS (3)
  1. PREDNISOLONE [Concomitant]
     Indication: PEMPHIGUS
     Route: 065
  2. GAMMAGARD S/D [Suspect]
     Indication: PEMPHIGUS
     Route: 042
  3. GAMMAGARD S/D [Suspect]
     Indication: OFF LABEL USE
     Route: 042

REACTIONS (1)
  - PLATELET COUNT DECREASED [None]
